FAERS Safety Report 9691818 (Version 2)
Quarter: 2013Q4

REPORT INFORMATION
  Report Type: Spontaneous
  Country: BR (occurrence: BR)
  Receive Date: 20131115
  Receipt Date: 20131115
  Transmission Date: 20140711
  Serious: Yes (Other)
  Sender: FDA-Public Use
  Company Number: BR-US-EMD SERONO, INC.-7115135

PATIENT
  Sex: Female

DRUGS (2)
  1. REBIF [Suspect]
     Indication: RELAPSING-REMITTING MULTIPLE SCLEROSIS
     Dates: start: 20110608
  2. PARACETAMOL [Concomitant]
     Indication: HEADACHE

REACTIONS (3)
  - Hypertension [Recovered/Resolved]
  - Injection site nodule [Not Recovered/Not Resolved]
  - Headache [Not Recovered/Not Resolved]
